FAERS Safety Report 8557920-6 (Version None)
Quarter: 2012Q3

REPORT INFORMATION
  Report Type: 
  Country: None (occurrence: None)
  Receive Date: 20120801
  Receipt Date: 20120723
  Transmission Date: 20120928
  Serious: Yes (Hospitalization)
  Sender: FDA-Public Use
  Company Number: US-BRISTOL-MYERS SQUIBB COMPANY-12989398

PATIENT
  Age: 70 Year
  Sex: Female
  Weight: 71 kg

DRUGS (10)
  1. DERMOPLAST [Suspect]
  2. COLACE [Concomitant]
  3. TAXOTERE [Suspect]
     Indication: HEAD AND NECK CANCER
     Dosage: 1ST COURSE DOCETAXEL 30-MAR-2005. WEEKS 2-7 DOCETAXEL WEEKLY 15 MG/M2. TOTAL DOSE:26.1MG
     Dates: start: 20050510, end: 20050510
  4. CYTOMEL [Concomitant]
  5. ALLEGRA [Concomitant]
  6. ATENOLOL [Concomitant]
  7. MORPHINE SULFATE [Concomitant]
  8. LEVAQUIN [Concomitant]
  9. ERBITUX [Suspect]
     Indication: HEAD AND NECK CANCER
     Dosage: 1ST COURSE:30-MAR-2005. WEEK 1 LOADING DOSE400 MG/M2. WEEKS 2-7, WEEKLY 250 MG/M2. TOTALDOSE:435MG
     Dates: start: 20050510, end: 20050510
  10. CELEBREX [Concomitant]

REACTIONS (5)
  - STOMATITIS [None]
  - THERMAL BURN [None]
  - RADIATION INJURY [None]
  - ORAL PAIN [None]
  - ODYNOPHAGIA [None]
